FAERS Safety Report 14437777 (Version 1)
Quarter: 2018Q1

REPORT INFORMATION
  Report Type: Spontaneous
  Country: US (occurrence: US)
  Receive Date: 20180125
  Receipt Date: 20180125
  Transmission Date: 20180509
  Serious: No
  Sender: FDA-Public Use
  Company Number: US-ABBVIE-17K-163-1870279-00

PATIENT
  Age: 21 Year
  Sex: Female

DRUGS (2)
  1. HUMIRA [Suspect]
     Active Substance: ADALIMUMAB
     Indication: CROHN^S DISEASE
     Route: 058
     Dates: start: 20170209, end: 20170209
  2. PREDNISONE. [Concomitant]
     Active Substance: PREDNISONE
     Indication: CROHN^S DISEASE

REACTIONS (5)
  - Injection site haemorrhage [Recovered/Resolved]
  - Wrong technique in product usage process [Unknown]
  - Drug dose omission [Unknown]
  - Incorrect dose administered [Unknown]
  - Needle issue [Unknown]

NARRATIVE: CASE EVENT DATE: 20170209
